FAERS Safety Report 9735830 (Version 1)
Quarter: 2013Q4

REPORT INFORMATION
  Report Type: Spontaneous
  Country: US (occurrence: US)
  Receive Date: 20131206
  Receipt Date: 20131206
  Transmission Date: 20140711
  Serious: No
  Sender: FDA-Public Use
  Company Number: US-GILEAD-2009-0024008

PATIENT
  Age: 57 Year
  Sex: Female

DRUGS (6)
  1. LETAIRIS [Suspect]
     Indication: PULMONARY ARTERIAL HYPERTENSION
     Route: 048
  2. LISINOPRIL [Concomitant]
  3. METOPROLOL [Concomitant]
  4. GLIPIZIDE [Concomitant]
  5. DIATX [Concomitant]
  6. MINOXIDIL [Concomitant]

REACTIONS (1)
  - Local swelling [Unknown]
